FAERS Safety Report 10009894 (Version 2)
Quarter: 2014Q1

REPORT INFORMATION
  Report Type: Spontaneous
  Country: US (occurrence: US)
  Receive Date: 20140312
  Receipt Date: 20140312
  Transmission Date: 20141002
  Serious: No
  Sender: FDA-Public Use
  Company Number: US-INCYTE CORPORATION-2013IN000295

PATIENT
  Age: 65 Year
  Sex: Male
  Weight: 81.63 kg

DRUGS (4)
  1. JAKAFI [Suspect]
     Indication: POLYCYTHAEMIA VERA
     Dosage: 20 MG, BID
     Route: 048
     Dates: start: 20130113, end: 2013
  2. ANAGRELIDE [Suspect]
  3. PROPAFENONE [Concomitant]
  4. METOPROLOL [Concomitant]

REACTIONS (3)
  - Abdominal discomfort [Recovering/Resolving]
  - Dizziness [Recovered/Resolved]
  - Anaemia [Unknown]
